FAERS Safety Report 23929587 (Version 2)
Quarter: 2025Q3

REPORT INFORMATION
  Report Type: Spontaneous
  Country: US (occurrence: US)
  Receive Date: 20240601
  Receipt Date: 20250703
  Transmission Date: 20251021
  Serious: No
  Sender: RADIUS PHARM
  Company Number: US-RADIUS HEALTH INC.-2024US002242

PATIENT
  Age: 69 Year
  Sex: Female

DRUGS (1)
  1. TYMLOS [Suspect]
     Active Substance: ABALOPARATIDE
     Indication: Senile osteoporosis
     Route: 058
     Dates: start: 202403

REACTIONS (9)
  - Pain in jaw [Recovered/Resolved]
  - Neck pain [Recovered/Resolved]
  - Product administered at inappropriate site [Unknown]
  - Bone pain [Recovered/Resolved]
  - Lymph node pain [Recovered/Resolved]
  - Drug hypersensitivity [Unknown]
  - Intentional dose omission [Unknown]
  - Musculoskeletal discomfort [Recovered/Resolved]
  - Lymphadenopathy [Recovered/Resolved]

NARRATIVE: CASE EVENT DATE: 20240401
